FAERS Safety Report 9476654 (Version 1)
Quarter: 2013Q3

REPORT INFORMATION
  Report Type: Spontaneous
  Country: US (occurrence: US)
  Receive Date: 20130826
  Receipt Date: 20130826
  Transmission Date: 20140515
  Serious: No
  Sender: FDA-Public Use
  Company Number: US-BRISTOL-MYERS SQUIBB COMPANY-18698563

PATIENT
  Sex: Female

DRUGS (2)
  1. KENALOG INJ [Suspect]
     Indication: PSORIASIS
  2. SYNTHROID [Concomitant]

REACTIONS (4)
  - Swelling [Not Recovered/Not Resolved]
  - Pain [Not Recovered/Not Resolved]
  - Contusion [Not Recovered/Not Resolved]
  - Pallor [Not Recovered/Not Resolved]
